FAERS Safety Report 10452937 (Version 1)
Quarter: 2014Q3

REPORT INFORMATION
  Report Type: Spontaneous
  Country: US (occurrence: None)
  Receive Date: 20140912
  Receipt Date: 20140912
  Transmission Date: 20150326
  Serious: Yes (Life-Threatening, Hospitalization)
  Sender: FDA-Public Use
  Company Number: None

PATIENT
  Age: 57 Year
  Sex: Male
  Weight: 82.7 kg

DRUGS (1)
  1. HYDROCHLOROTHIAZIDE/LISINOPRIL [Suspect]
     Active Substance: HYDROCHLOROTHIAZIDE\LISINOPRIL
     Indication: HYPERTENSION
     Dosage: 1 TAB EVERY DAY PO
     Route: 048
     Dates: start: 20140821, end: 20140823

REACTIONS (3)
  - Anaphylactic reaction [None]
  - Angioedema [None]
  - Blood pressure increased [None]

NARRATIVE: CASE EVENT DATE: 20140823
